FAERS Safety Report 5244210-2 (Version None)
Quarter: 2007Q1

REPORT INFORMATION
  Report Type: 
  Country: None (occurrence: None)
  Receive Date: 20070216
  Receipt Date: 20070205
  Transmission Date: 20070707
  Serious: Yes (Hospitalization)
  Sender: FDA-Public Use
  Company Number: 2007US000259

PATIENT
  Age: 45 Year
  Sex: Female

DRUGS (1)
  1. AMEVIVE [Suspect]
     Indication: PSORIASIS
     Dosage: 15 MG, WEEKLY
     Dates: start: 20060220, end: 20061215

REACTIONS (5)
  - CD4 LYMPHOCYTES DECREASED [None]
  - DRUG HYPERSENSITIVITY [None]
  - LATEX ALLERGY [None]
  - OEDEMA PERIPHERAL [None]
  - STAPHYLOCOCCAL INFECTION [None]
